FAERS Safety Report 16608819 (Version 1)
Quarter: 2019Q3

REPORT INFORMATION
  Report Type: Spontaneous
  Country: US (occurrence: US)
  Receive Date: 20190719
  Receipt Date: 20190719
  Transmission Date: 20191004
  Serious: No
  Sender: FDA-Public Use
  Company Number: None

PATIENT
  Age: 56 Year
  Sex: Female

DRUGS (1)
  1. ALTALUBE [Suspect]
     Active Substance: MINERAL OIL\PETROLATUM
     Indication: DRY EYE
     Dosage: ?          QUANTITY:5 DROP(S);?
     Route: 047
     Dates: start: 20190610, end: 20190718

REACTIONS (4)
  - Recalled product administered [None]
  - Eye pain [None]
  - Drug ineffective [None]
  - Product sterility lacking [None]

NARRATIVE: CASE EVENT DATE: 20190708
